FAERS Safety Report 9048892 (Version 1)
Quarter: 2013Q1

REPORT INFORMATION
  Report Type: Spontaneous
  Country: US (occurrence: None)
  Receive Date: 20130116
  Receipt Date: 20130116
  Transmission Date: 20140127
  Serious: Yes (Hospitalization)
  Sender: FDA-Public Use
  Company Number: UTC-027772

PATIENT
  Age: 71 Year
  Sex: Female
  Weight: 43.6 kg

DRUGS (4)
  1. REMODULIN (2.5 MILLIGRAM/MILLILITERS, INJECTION FOR INFUSION) (TREPROSTINIL SODIUM) [Suspect]
     Indication: PULMONARY ARTERIAL HYPERTENSION
     Dosage: 41.76 UG/KG (0.029 UG.KG, 1 IN 1 MIN), SUBCUTANEOUS
     Route: 058
     Dates: start: 20121101
  2. REVATIO (SILDENAFIL CITRATE) [Concomitant]
  3. ASPIRIN (ACETYLSALICYLIC ACID) [Concomitant]
  4. DILTIAZEM [Concomitant]

REACTIONS (2)
  - Dyspnoea [None]
  - Abdominal pain [None]
